FAERS Safety Report 11094850 (Version 2)
Quarter: 2015Q2

REPORT INFORMATION
  Report Type: Spontaneous
  Country: FR (occurrence: FR)
  Receive Date: 20150506
  Receipt Date: 20150612
  Transmission Date: 20150821
  Serious: Yes (Hospitalization)
  Sender: FDA-Public Use
  Company Number: FR-ABBVIE-15K-056-1382664-00

PATIENT
  Age: 44 Year
  Sex: Female

DRUGS (2)
  1. SEROPLEX [Concomitant]
     Active Substance: ESCITALOPRAM OXALATE
     Indication: PRODUCT USED FOR UNKNOWN INDICATION
     Dosage: 10MG IN THE EVENING
  2. HUMIRA [Suspect]
     Active Substance: ADALIMUMAB
     Indication: PRODUCT USED FOR UNKNOWN INDICATION
     Route: 058
     Dates: start: 20141003, end: 20141116

REACTIONS (13)
  - Hoffmann^s sign [Unknown]
  - Back pain [Recovering/Resolving]
  - Muscular weakness [Recovering/Resolving]
  - Hemiparesis [Recovering/Resolving]
  - Peripheral sensory neuropathy [Recovering/Resolving]
  - Asthenia [Recovering/Resolving]
  - Myelitis [Recovering/Resolving]
  - Multiple sclerosis [Not Recovered/Not Resolved]
  - Lhermitte^s sign [Recovering/Resolving]
  - Clonus [Recovering/Resolving]
  - Motor dysfunction [Unknown]
  - Central nervous system inflammation [Recovering/Resolving]
  - Paraesthesia [Recovering/Resolving]

NARRATIVE: CASE EVENT DATE: 201411
